FAERS Safety Report 8988787 (Version 1)
Quarter: 2012Q4

REPORT INFORMATION
  Report Type: 
  Country: NL (occurrence: NL)
  Receive Date: 20121228
  Receipt Date: 20121228
  Transmission Date: 20130627
  Serious: Yes (Hospitalization)
  Sender: FDA-Public Use
  Company Number: PHHY2012NL120416

PATIENT
  Sex: Female

DRUGS (1)
  1. SANDOSTATIN LAR [Suspect]
     Indication: PANCREATIC NEUROENDOCRINE TUMOUR
     Dosage: 30 mg, Every 4 weeks
     Route: 030
     Dates: start: 20070108

REACTIONS (5)
  - Intestinal polyp [Unknown]
  - Intestinal perforation [Unknown]
  - Peritonitis [Unknown]
  - Pulmonary oedema [Unknown]
  - Respiratory tract infection [Unknown]
